FAERS Safety Report 17830778 (Version 1)
Quarter: 2020Q2

REPORT INFORMATION
  Report Type: Report from Study
  Country: US (occurrence: US)
  Receive Date: 20200527
  Receipt Date: 20200527
  Transmission Date: 20200714
  Serious: Yes (Hospitalization)
  Sender: FDA-Public Use
  Company Number: US-EISAI MEDICAL RESEARCH-EC-2019-067221

PATIENT
  Age: 86 Year
  Sex: Male
  Weight: 75 kg

DRUGS (18)
  1. ONDANSETRON [Concomitant]
     Active Substance: ONDANSETRON
  2. PROMETHAZINE [Concomitant]
     Active Substance: PROMETHAZINE HYDROCHLORIDE
  3. HYDROCHLOROTHIAZIDE. [Concomitant]
     Active Substance: HYDROCHLOROTHIAZIDE
  4. PROCHLORPERAZINE. [Concomitant]
     Active Substance: PROCHLORPERAZINE
  5. DULERA [Concomitant]
     Active Substance: FORMOTEROL FUMARATE DIHYDRATE\MOMETASONE FUROATE
  6. DULOXETINE. [Concomitant]
     Active Substance: DULOXETINE
  7. TYLENOL [Concomitant]
     Active Substance: ACETAMINOPHEN
  8. TIROSINT [Concomitant]
     Active Substance: LEVOTHYROXINE SODIUM
  9. LENVIMA [Suspect]
     Active Substance: LENVATINIB
     Indication: HEPATOCELLULAR CARCINOMA
     Route: 048
     Dates: start: 20191204, end: 202005
  10. DORZOLAMIDE-TIMOLOL [Concomitant]
     Active Substance: DORZOLAMIDE\TIMOLOL
  11. ELIQUIS [Concomitant]
     Active Substance: APIXABAN
  12. ARMOUR THYROID [Concomitant]
     Active Substance: THYROID, PORCINE
  13. LATANOPROST. [Concomitant]
     Active Substance: LATANOPROST
  14. SELENIUM [Concomitant]
     Active Substance: SELENIUM
  15. CYANOCOBALAMIN. [Concomitant]
     Active Substance: CYANOCOBALAMIN
  16. LISINOPRIL. [Concomitant]
     Active Substance: LISINOPRIL
  17. MECLIZINE [Concomitant]
     Active Substance: MECLIZINE HYDROCHLORIDE
  18. OMEPRAZOLE. [Concomitant]
     Active Substance: OMEPRAZOLE

REACTIONS (16)
  - Weight decreased [Unknown]
  - Hypertension [Recovering/Resolving]
  - Joint swelling [Unknown]
  - Blood pressure decreased [Unknown]
  - Swelling [Unknown]
  - Oedema [Unknown]
  - Decreased appetite [Unknown]
  - Taste disorder [Unknown]
  - Tongue ulceration [Unknown]
  - Dehydration [Unknown]
  - Fatigue [Unknown]
  - Renal disorder [Unknown]
  - Stomatitis [Unknown]
  - Oral discomfort [Recovering/Resolving]
  - Thyroid function test abnormal [Unknown]
  - Asthenia [Unknown]

NARRATIVE: CASE EVENT DATE: 201912
